FAERS Safety Report 13097791 (Version 2)
Quarter: 2017Q2

REPORT INFORMATION
  Report Type: Report from Study
  Country: US (occurrence: US)
  Receive Date: 20170109
  Receipt Date: 20170407
  Transmission Date: 20170830
  Serious: Yes (Other)
  Sender: FDA-Public Use
  Company Number: US-PFIZER INC-2017002918

PATIENT

DRUGS (4)
  1. TEMOZOLOMIDE. [Suspect]
     Active Substance: TEMOZOLOMIDE
     Indication: SYNOVIAL SARCOMA RECURRENT
     Dosage: 100 MG/M2, CYCLIC (ON DAYS 1-5 OF EACH 21 DAY CYCLE)
     Route: 048
  2. IRINOTECAN HCL [Suspect]
     Active Substance: IRINOTECAN HYDROCHLORIDE
     Indication: SYNOVIAL SARCOMA RECURRENT
     Dosage: 30 MG/M2, CYCLIC (ON DAYS 1-5 OF EACH 21 DAY CYCLE)
     Route: 042
  3. VINCRISTINE SULFATE. [Suspect]
     Active Substance: VINCRISTINE SULFATE
     Indication: SYNOVIAL SARCOMA RECURRENT
     Dosage: 1.5 MG/M2, CYCLIC (ON DAYS 1 AND 8 OF OF EACH 21 DAY CYCLE)
     Route: 042
  4. BEVACIZUMAB [Suspect]
     Active Substance: BEVACIZUMAB
     Indication: SYNOVIAL SARCOMA RECURRENT
     Dosage: 15 MG/KG, CYCLIC (ON DAY 1 ADMINISTERED OVER 90 MINUTES DURING CYCLE 1)
     Route: 042

REACTIONS (1)
  - Hyperbilirubinaemia [Unknown]
